FAERS Safety Report 10166657 (Version 2)
Quarter: 2014Q2

REPORT INFORMATION
  Report Type: Spontaneous
  Country: US (occurrence: US)
  Receive Date: 20140512
  Receipt Date: 20140522
  Transmission Date: 20141212
  Serious: Yes (Other)
  Sender: FDA-Public Use
  Company Number: US-AMGEN INC.-USASP2014033863

PATIENT
  Age: 52 Year
  Sex: Male

DRUGS (2)
  1. ENBREL [Suspect]
     Indication: PSORIASIS
     Dosage: 50 MG, QWK
     Route: 065
     Dates: start: 20110519, end: 20140506
  2. GABAPENTIN [Suspect]
     Indication: NEUROLOGICAL SYMPTOM
     Dosage: UNK
     Route: 065

REACTIONS (9)
  - Neuropathy peripheral [Unknown]
  - Condition aggravated [Unknown]
  - Neurological symptom [Unknown]
  - Feeling hot [Unknown]
  - Paraesthesia [Unknown]
  - Inappropriate schedule of drug administration [Unknown]
  - Treatment failure [Unknown]
  - Hypertension [Unknown]
  - Hypoaesthesia [Unknown]
